FAERS Safety Report 7479357-3 (Version None)
Quarter: 2011Q2

REPORT INFORMATION
  Report Type: 
  Country: None (occurrence: None)
  Receive Date: 20110513
  Receipt Date: 20110505
  Transmission Date: 20111010
  Serious: Yes (Hospitalization)
  Sender: FDA-Public Use
  Company Number: US-PURDUE-USA-2011-0067777

PATIENT
  Sex: Female
  Weight: 69.841 kg

DRUGS (8)
  1. TRAZADOL [Concomitant]
     Indication: SLEEP DISORDER
     Dosage: UNK
  2. CALCIUM [Concomitant]
     Indication: PRODUCT USED FOR UNKNOWN INDICATION
     Dosage: UNK
  3. ALPRAZOLAM [Concomitant]
     Indication: ANXIETY
     Dosage: UNK, Q8H
  4. PRENATAL VITAMINS                  /01549301/ [Concomitant]
     Indication: PRODUCT USED FOR UNKNOWN INDICATION
     Dosage: UNK
  5. LEUPROLIDE ACETATE [Suspect]
     Indication: ENDOMETRIOSIS
     Dosage: 11.25 MG, EVERY 3 MONTHS
     Route: 058
     Dates: start: 20101101, end: 20110201
  6. DILAUDID [Suspect]
     Indication: PAIN
     Dosage: UNK
     Dates: start: 20110201, end: 20110201
  7. HYDROCODONE BITARTRATE [Concomitant]
     Indication: PAIN
     Dosage: UNK
  8. FENTANYL [Concomitant]
     Indication: PAIN
     Dosage: UNK

REACTIONS (12)
  - GAIT DISTURBANCE [None]
  - LOSS OF CONSCIOUSNESS [None]
  - SOMNOLENCE [None]
  - DEPRESSION [None]
  - MUSCULAR WEAKNESS [None]
  - CRYING [None]
  - FIBROMYALGIA [None]
  - HYPOKINESIA [None]
  - ARTHRALGIA [None]
  - MYALGIA [None]
  - PAIN IN EXTREMITY [None]
  - ACTIVITIES OF DAILY LIVING IMPAIRED [None]
